FAERS Safety Report 9614436 (Version 1)
Quarter: 2013Q4

REPORT INFORMATION
  Report Type: Spontaneous
  Country: US (occurrence: None)
  Receive Date: 20131009
  Receipt Date: 20131009
  Transmission Date: 20140711
  Serious: Yes (Life-Threatening, Hospitalization)
  Sender: FDA-Public Use
  Company Number: None

PATIENT
  Age: 68 Year
  Sex: Male
  Weight: 76.4 kg

DRUGS (14)
  1. COUMADIN [Suspect]
     Indication: DEEP VEIN THROMBOSIS
     Dosage: 7.5 MG MWF, ORAL
     Route: 048
  2. COUMADIN [Suspect]
     Indication: DEEP VEIN THROMBOSIS
     Dosage: 5 MG TU/TH/SAT/SUN, ORAL
     Route: 048
  3. PROAIR HFA [Concomitant]
  4. AMLODIPINE [Concomitant]
  5. ASA [Concomitant]
  6. ATORVASTATIN [Concomitant]
  7. COREG CR [Concomitant]
  8. VIT D3 [Concomitant]
  9. NEXIUM [Concomitant]
  10. TRILIPIX DR [Concomitant]
  11. FERROUS SULFATE [Concomitant]
  12. LOVAZA [Concomitant]
  13. HYDRALAZINE [Concomitant]
  14. HCTZ [Concomitant]

REACTIONS (8)
  - Abdominal pain [None]
  - Dizziness [None]
  - Epigastric discomfort [None]
  - Nausea [None]
  - Asthenia [None]
  - Decreased appetite [None]
  - International normalised ratio increased [None]
  - Gastrointestinal haemorrhage [None]
